FAERS Safety Report 7527069-X (Version None)
Quarter: 2011Q2

REPORT INFORMATION
  Report Type: 
  Country: None (occurrence: None)
  Receive Date: 20110606
  Receipt Date: 20110525
  Transmission Date: 20111010
  Serious: Yes (Other)
  Sender: FDA-Public Use
  Company Number: US-RB-024571-11

PATIENT
  Age: 60 Year
  Sex: Male

DRUGS (2)
  1. SUBOXONE [Suspect]
     Indication: PRODUCT USED FOR UNKNOWN INDICATION
     Dosage: SUBOXONE SUBLINGUAL FILM, DOSAGE UNKNOWN.
     Route: 065
  2. SUBOXONE [Suspect]
     Indication: PRODUCT USED FOR UNKNOWN INDICATION
     Dosage: DOSAGE INFORMATION UNKNOWN
     Route: 065
     Dates: start: 20080301

REACTIONS (13)
  - HYPOGLYCAEMIA [None]
  - INTENTIONAL DRUG MISUSE [None]
  - NAUSEA [None]
  - CONVULSION [None]
  - DECREASED APPETITE [None]
  - INAPPROPRIATE SCHEDULE OF DRUG ADMINISTRATION [None]
  - HYPERHIDROSIS [None]
  - SUBSTANCE ABUSE [None]
  - PYREXIA [None]
  - VOMITING [None]
  - INTENTIONAL OVERDOSE [None]
  - TOOTHACHE [None]
  - SELF-MEDICATION [None]
